FAERS Safety Report 4435835-2 (Version None)
Quarter: 2004Q3

REPORT INFORMATION
  Report Type: 
  Country: None (occurrence: None)
  Receive Date: 20040826
  Receipt Date: 20040817
  Transmission Date: 20050211
  Serious: Yes (Death, Other)
  Sender: FDA-Public Use
  Company Number: 2004229130US

PATIENT
  Age: 75 Year
  Sex: Female

DRUGS (3)
  1. PROVERA [Suspect]
     Dates: start: 19890101, end: 19960101
  2. PREMPRO [Suspect]
     Dates: start: 19960101, end: 20000101
  3. PREMARIN [Suspect]
     Dates: start: 19890101, end: 19960101

REACTIONS (1)
  - OVARIAN CANCER [None]
